FAERS Safety Report 7530224-6 (Version None)
Quarter: 2011Q2

REPORT INFORMATION
  Report Type: 
  Country: None (occurrence: None)
  Receive Date: 20110526
  Receipt Date: 20110505
  Transmission Date: 20111010
  Serious: Yes (Death, Other)
  Sender: FDA-Public Use
  Company Number: 2011SP020521

PATIENT
  Age: 1 Day
  Sex: Male

DRUGS (1)
  1. NUVARING [Suspect]
     Indication: DRUG EXPOSURE DURING PREGNANCY
     Dosage: TRPL
     Route: 064
     Dates: start: 20081101, end: 20090205

REACTIONS (4)
  - LOW SET EARS [None]
  - MATERNAL DRUGS AFFECTING FOETUS [None]
  - INTRA-UTERINE DEATH [None]
  - LIMB MALFORMATION [None]
